FAERS Safety Report 9547018 (Version 1)
Quarter: 2013Q2

REPORT INFORMATION
  Report Type: Spontaneous
  Country: US (occurrence: None)
  Receive Date: 20130606
  Receipt Date: 20130606
  Transmission Date: 20140414
  Serious: Yes (Hospitalization)
  Sender: FDA-Public Use
  Company Number: 163-POMAL-13044262

PATIENT
  Age: 60 Year
  Sex: Female
  Weight: 56.25 kg

DRUGS (6)
  1. POMALYST [Suspect]
     Indication: PLASMA CELL MYELOMA
     Dosage: 4MG, 21 IN 21 D PO
     Route: 048
     Dates: start: 20130315, end: 2013
  2. NEUPOGEN (FILGRASTIM) [Concomitant]
  3. ZOFRAN (ONDANSETRON HYDROCHLORIDE) [Concomitant]
  4. DECADRON (DEXAMETHASONE) [Concomitant]
  5. GABAPENTIN (GABAPENTIN) [Concomitant]
  6. ASA (ACETYLSALICYLIC ACID) [Concomitant]

REACTIONS (3)
  - Pyrexia [None]
  - Neutropenia [None]
  - Neuropathy peripheral [None]
